FAERS Safety Report 23723074 (Version 1)
Quarter: 2024Q2

REPORT INFORMATION
  Report Type: Spontaneous
  Country: EG (occurrence: EG)
  Receive Date: 20240409
  Receipt Date: 20240409
  Transmission Date: 20240715
  Serious: Yes (Hospitalization)
  Sender: FDA-Public Use
  Company Number: EG-HIKMA PHARMACEUTICALS-EG-H14001-24-02860

PATIENT
  Age: 63 Year
  Sex: Male

DRUGS (4)
  1. PEMETREXED [Suspect]
     Active Substance: PEMETREXED
     Indication: Mesothelioma
     Dosage: 900 MILLIGRAM, 3W
     Route: 065
  2. PEMETREXED [Suspect]
     Active Substance: PEMETREXED
     Dosage: 900 MG DILUTED IN 100 ML NORMAL SALINE OVER 10-15 MINS
     Route: 065
     Dates: start: 20240108
  3. CISPLATIN [Suspect]
     Active Substance: CISPLATIN
     Indication: Mesothelioma
     Dosage: 60 MILLIGRAM, DAY 1,2, 3W
     Route: 065
  4. CISPLATIN [Suspect]
     Active Substance: CISPLATIN
     Dosage: 60 MG DILUTED ON 500 ML NORMAL SALINE OVER 2 HRS
     Route: 065
     Dates: start: 20240108

REACTIONS (6)
  - Epistaxis [Not Recovered/Not Resolved]
  - Mouth ulceration [Not Recovered/Not Resolved]
  - Oesophageal ulcer [Not Recovered/Not Resolved]
  - Feeding disorder [Not Recovered/Not Resolved]
  - Dyspepsia [Not Recovered/Not Resolved]
  - Neutrophil count abnormal [Not Recovered/Not Resolved]

NARRATIVE: CASE EVENT DATE: 20240109
